FAERS Safety Report 10248043 (Version 2)
Quarter: 2014Q3

REPORT INFORMATION
  Report Type: Spontaneous
  Country: US (occurrence: US)
  Receive Date: 20140619
  Receipt Date: 20140930
  Transmission Date: 20150326
  Serious: No
  Sender: FDA-Public Use
  Company Number: US-GILEAD-2014-0105767

PATIENT
  Age: 69 Year
  Sex: Female

DRUGS (11)
  1. METOPROLOL [Concomitant]
     Active Substance: METOPROLOL
  2. FOLIC ACID. [Concomitant]
     Active Substance: FOLIC ACID
  3. IMDUR [Suspect]
     Active Substance: ISOSORBIDE MONONITRATE
     Indication: PRODUCT USED FOR UNKNOWN INDICATION
     Dosage: UNK
     Route: 065
     Dates: end: 20140526
  4. FERROUS SULFATE [Concomitant]
     Active Substance: FERROUS SULFATE\FERROUS SULFATE, DRIED
  5. LASIX [Concomitant]
     Active Substance: FUROSEMIDE
  6. SIMVASTATIN. [Concomitant]
     Active Substance: SIMVASTATIN
  7. PEPCID AC [Concomitant]
     Active Substance: FAMOTIDINE
  8. SPIRIVA [Concomitant]
     Active Substance: TIOTROPIUM BROMIDE MONOHYDRATE
  9. PROCARDIA [Concomitant]
     Active Substance: NIFEDIPINE
  10. LETAIRIS [Suspect]
     Active Substance: AMBRISENTAN
     Indication: PULMONARY ARTERIAL HYPERTENSION
     Dosage: 10 MG, QD
     Route: 065
     Dates: start: 20140524
  11. KCL [Concomitant]
     Active Substance: POTASSIUM CHLORIDE

REACTIONS (2)
  - Fatigue [Recovered/Resolved]
  - Hypotension [Unknown]

NARRATIVE: CASE EVENT DATE: 20140524
